FAERS Safety Report 15299001 (Version 21)
Quarter: 2020Q1

REPORT INFORMATION
  Report Type: Spontaneous
  Country: CA (occurrence: CA)
  Receive Date: 20180821
  Receipt Date: 20200327
  Transmission Date: 20200409
  Serious: Yes (Hospitalization, Other)
  Sender: FDA-Public Use
  Company Number: CA-CELLTRION INC.-2018CA019065

PATIENT

DRUGS (22)
  1. INFLECTRA [Suspect]
     Active Substance: INFLIXIMAB-DYYB
     Dosage: 300 MG ON WEEK 0, 2, 6 THEN EVERY 8 WEEKS
     Route: 042
     Dates: start: 20180626
  2. INFLECTRA [Suspect]
     Active Substance: INFLIXIMAB-DYYB
     Dosage: 400 MG, EVERY 6 WEEKS
     Route: 042
     Dates: start: 20191008
  3. INFLECTRA [Suspect]
     Active Substance: INFLIXIMAB-DYYB
     Dosage: 400 MG, EVERY 6 WEEKS
     Route: 042
     Dates: start: 20200309
  4. LIPITOR [Concomitant]
     Active Substance: ATORVASTATIN CALCIUM
     Dosage: 40 MG OD (1X/DAY)
     Route: 048
     Dates: start: 2013
  5. INFLECTRA [Suspect]
     Active Substance: INFLIXIMAB-DYYB
     Dosage: 400 MG, EVERY 6 WEEKS
     Route: 042
     Dates: start: 20190109
  6. INFLECTRA [Suspect]
     Active Substance: INFLIXIMAB-DYYB
     Dosage: 400 MG, EVERY 6 WEEKS
     Route: 042
     Dates: start: 20200103
  7. INFLECTRA [Suspect]
     Active Substance: INFLIXIMAB-DYYB
     Dosage: 300 MG ON WEEK 0, 2, 6 THEN EVERY 8 WEEKS
     Route: 042
     Dates: start: 20180403
  8. HUMIRA [Concomitant]
     Active Substance: ADALIMUMAB
     Dosage: 40 MG, CYCLIC Q (EVERY) 2 WEEKS
     Route: 058
     Dates: start: 201702
  9. INFLECTRA [Suspect]
     Active Substance: INFLIXIMAB-DYYB
     Indication: RHEUMATOID ARTHRITIS
     Dosage: 300 MG ON WEEK 0, 2, 6 THEN EVERY 8 WEEKS
     Route: 042
     Dates: start: 20180313
  10. INFLECTRA [Suspect]
     Active Substance: INFLIXIMAB-DYYB
     Dosage: 300 MG, EVERY 6 WEEKS
     Route: 042
     Dates: start: 20181001
  11. INFLECTRA [Suspect]
     Active Substance: INFLIXIMAB-DYYB
     Dosage: 400 MG, EVERY 6 WEEKS
     Route: 042
     Dates: start: 20181114
  12. INFLECTRA [Suspect]
     Active Substance: INFLIXIMAB-DYYB
     Dosage: 400 MG, EVERY 6 WEEKS
     Route: 042
     Dates: start: 20190718
  13. INFLECTRA [Suspect]
     Active Substance: INFLIXIMAB-DYYB
     Dosage: 400 MG, EVERY 6 WEEKS
     Route: 042
     Dates: start: 20190508
  14. CIPRALEX [Concomitant]
     Active Substance: ESCITALOPRAM OXALATE
     Dosage: 20 MG OD (1X/DAY)
     Route: 048
     Dates: start: 2012
  15. INFLECTRA [Suspect]
     Active Substance: INFLIXIMAB-DYYB
     Dosage: 400 MG, EVERY 6 WEEKS
     Route: 042
     Dates: start: 20181114
  16. ATACAND [Concomitant]
     Active Substance: CANDESARTAN CILEXETIL
     Dosage: 4 MG OD (1X/DAY)
     Route: 048
     Dates: start: 2013
  17. INFLECTRA [Suspect]
     Active Substance: INFLIXIMAB-DYYB
     Dosage: 400 MG, EVERY 6 WEEKS
     Route: 042
     Dates: start: 20190305
  18. INFLECTRA [Suspect]
     Active Substance: INFLIXIMAB-DYYB
     Dosage: 400 MG, EVERY 6 WEEKS
     Route: 042
     Dates: start: 20190508
  19. INFLECTRA [Suspect]
     Active Substance: INFLIXIMAB-DYYB
     Dosage: 400 MG, EVERY 6 WEEKS
     Route: 042
     Dates: start: 20191120
  20. ADVIL [IBUPROFEN] [Concomitant]
     Active Substance: IBUPROFEN
     Indication: PAIN
     Dosage: 400 MG, 2X/DAY
     Route: 065
  21. METFORMIN [Concomitant]
     Active Substance: METFORMIN HYDROCHLORIDE
     Dosage: 500 MG BID (2X/DAY)
     Route: 048
     Dates: start: 2013
  22. VICTOZA [Concomitant]
     Active Substance: LIRAGLUTIDE
     Dosage: 1.8 MG OD (1X/DAY)
     Route: 048
     Dates: start: 2013

REACTIONS (22)
  - Postoperative wound infection [Unknown]
  - Liver function test abnormal [Unknown]
  - Malaise [Recovering/Resolving]
  - Weight decreased [Recovering/Resolving]
  - Thyroid mass [Unknown]
  - Lower respiratory tract infection [Unknown]
  - Fall [Unknown]
  - Bronchitis [Unknown]
  - Nasopharyngitis [Not Recovered/Not Resolved]
  - Rhinorrhoea [Not Recovered/Not Resolved]
  - Off label use [Unknown]
  - Product use issue [Unknown]
  - Nausea [Recovering/Resolving]
  - Upper limb fracture [Unknown]
  - Steatohepatitis [Unknown]
  - Rheumatoid arthritis [Not Recovered/Not Resolved]
  - Therapeutic response shortened [Unknown]
  - Diarrhoea [Not Recovered/Not Resolved]
  - Blood pressure increased [Unknown]
  - Chronic sinusitis [Unknown]
  - Inappropriate schedule of product administration [Not Recovered/Not Resolved]
  - Throat irritation [Not Recovered/Not Resolved]

NARRATIVE: CASE EVENT DATE: 20180328
